FAERS Safety Report 5984262-5 (Version None)
Quarter: 2008Q4

REPORT INFORMATION
  Report Type: 
  Country: None (occurrence: None)
  Receive Date: 20081208
  Receipt Date: 20081127
  Transmission Date: 20090506
  Serious: Yes (Hospitalization)
  Sender: FDA-Public Use
  Company Number: FR-ASTRAZENECA-2008CG01754

PATIENT
  Age: 40 Year
  Sex: Female

DRUGS (10)
  1. ZESTRIL [Suspect]
     Route: 048
     Dates: start: 20050101, end: 20080626
  2. ACOMPLIA [Suspect]
     Route: 048
     Dates: start: 20071201, end: 20080401
  3. GLUCOPHAGE [Concomitant]
     Route: 048
  4. LANTUS [Concomitant]
  5. DIAMICRON [Concomitant]
     Route: 048
  6. ZOCOR [Concomitant]
     Route: 048
  7. LASIX [Concomitant]
     Route: 048
  8. FONZILANE [Concomitant]
     Route: 048
  9. DAFLON [Concomitant]
     Route: 048
  10. PLAVIX [Concomitant]
     Route: 048

REACTIONS (3)
  - FACE OEDEMA [None]
  - MOUTH ULCERATION [None]
  - PHARYNGITIS [None]
